FAERS Safety Report 9856012 (Version 1)
Quarter: 2014Q1

REPORT INFORMATION
  Report Type: Spontaneous
  Country: US (occurrence: US)
  Receive Date: 20140130
  Receipt Date: 20140130
  Transmission Date: 20141002
  Serious: No
  Sender: FDA-Public Use
  Company Number: US-PFIZER INC-2014026358

PATIENT
  Age: 68 Year
  Sex: Male
  Weight: 125 kg

DRUGS (3)
  1. LIPITOR [Suspect]
     Indication: BLOOD CHOLESTEROL INCREASED
     Dosage: 10 MG, 1X/DAY
     Dates: start: 201304
  2. LIPITOR [Suspect]
     Indication: BLOOD TRIGLYCERIDES INCREASED
  3. CAPTOPRIL [Concomitant]
     Indication: HYPERTENSION
     Dosage: 75 MG, 2X/DAY

REACTIONS (1)
  - Drug ineffective [Unknown]
